FAERS Safety Report 16840577 (Version 1)
Quarter: 2019Q3

REPORT INFORMATION
  Report Type: Spontaneous
  Country: SG (occurrence: SG)
  Receive Date: 20190923
  Receipt Date: 20190923
  Transmission Date: 20191005
  Serious: Yes (Hospitalization)
  Sender: FDA-Public Use
  Company Number: SG-UPSHER-SMITH LABORATORIES, LLC-2019USL00725

PATIENT
  Age: 45 Year
  Sex: Male

DRUGS (1)
  1. TESTOSTERONE. [Suspect]
     Active Substance: TESTOSTERONE
     Indication: GENDER REASSIGNMENT THERAPY
     Dosage: 250-MG DEPOT INJECTION, WEEKLY
     Route: 065
     Dates: start: 2011

REACTIONS (2)
  - Polycythaemia [Recovering/Resolving]
  - Retinal artery occlusion [Unknown]
